FAERS Safety Report 7361088-1 (Version None)
Quarter: 2011Q1

REPORT INFORMATION
  Report Type: 
  Country: None (occurrence: None)
  Receive Date: 20110318
  Receipt Date: 20110314
  Transmission Date: 20110831
  Serious: Yes (Life-Threatening, Hospitalization, Other)
  Sender: FDA-Public Use
  Company Number: PHHY2011US21231

PATIENT
  Sex: Female

DRUGS (6)
  1. LEVOXYL [Concomitant]
     Dosage: UNK
  2. ADVIL PM [Concomitant]
     Dosage: UNK
  3. ACIPHEX [Concomitant]
     Dosage: UNK
  4. GILENYA [Suspect]
     Dosage: 0.5 MG, QD
     Route: 048
  5. METMORPHIN [Concomitant]
     Dosage: UNK
  6. BACTRIM [Concomitant]
     Dosage: UNK

REACTIONS (12)
  - BLOOD PRESSURE DECREASED [None]
  - HEADACHE [None]
  - DECREASED APPETITE [None]
  - VISUAL IMPAIRMENT [None]
  - URTICARIA [None]
  - VOMITING [None]
  - NAUSEA [None]
  - PRURITUS [None]
  - KIDNEY INFECTION [None]
  - IMMOBILE [None]
  - TREMOR [None]
  - EAR DISORDER [None]
